FAERS Safety Report 5328646-7 (Version None)
Quarter: 2007Q2

REPORT INFORMATION
  Report Type: 
  Country: None (occurrence: None)
  Receive Date: 20070514
  Receipt Date: 20070507
  Transmission Date: 20071010
  Serious: Yes (Other)
  Sender: FDA-Public Use
  Company Number: 2007SP000414

PATIENT
  Age: 63 Year
  Sex: Female

DRUGS (1)
  1. DESLORATADINE [Suspect]
     Dates: start: 20060522

REACTIONS (2)
  - BURNING SENSATION [None]
  - FACE OEDEMA [None]
